FAERS Safety Report 5345934-9 (Version None)
Quarter: 2007Q2

REPORT INFORMATION
  Report Type: 
  Country: None (occurrence: None)
  Receive Date: 20070605
  Receipt Date: 20070601
  Transmission Date: 20071010
  Serious: Yes (Disabling)
  Sender: FDA-Public Use
  Company Number: B0293676A

PATIENT
  Age: 23 Year
  Sex: Male

DRUGS (17)
  1. ZIAGEN [Suspect]
     Indication: HIV INFECTION
     Dosage: 300MG TWICE PER DAY
     Route: 048
     Dates: start: 19990329
  2. VIDEX [Suspect]
     Indication: HIV INFECTION
     Route: 048
     Dates: start: 19951030
  3. ZERIT [Suspect]
     Indication: HIV INFECTION
     Route: 048
     Dates: start: 19980114
  4. STOCRIN [Suspect]
     Indication: HIV INFECTION
     Dosage: 600MG PER DAY
     Route: 048
     Dates: start: 19990329, end: 20020303
  5. VIRACEPT [Suspect]
     Indication: HIV INFECTION
     Route: 048
     Dates: start: 19970804, end: 20020303
  6. NORVIR [Suspect]
     Indication: HIV INFECTION
     Dosage: 400MG TWICE PER DAY
     Route: 048
     Dates: start: 19971111, end: 19980311
  7. KALETRA [Suspect]
     Indication: HIV INFECTION
     Dosage: 6CAP PER DAY
     Route: 048
     Dates: start: 20020304
  8. INVIRASE [Suspect]
     Indication: HIV INFECTION
     Route: 048
     Dates: start: 19970211, end: 19980311
  9. SEROSTIM [Suspect]
     Indication: WEIGHT DECREASED
     Route: 058
     Dates: start: 20010423, end: 20050623
  10. RETROVIR [Suspect]
     Indication: HIV INFECTION
     Route: 048
     Dates: start: 19930515, end: 19971111
  11. LOPERAMIDE HYDROCHLORIDE [Concomitant]
     Dosage: 1MG PER DAY
     Dates: start: 20010401
  12. EPIVIR [Concomitant]
     Indication: HIV INFECTION
     Dosage: 300MG PER DAY
     Route: 048
     Dates: start: 19970509, end: 19981116
  13. HIVID [Concomitant]
     Indication: HIV INFECTION
     Dosage: 2.25MG PER DAY
     Route: 048
     Dates: start: 19970211, end: 19990329
  14. PROZEI [Concomitant]
     Indication: HIV INFECTION
     Route: 048
     Dates: start: 19990510, end: 19990817
  15. RECOMBINATE [Concomitant]
     Indication: FACTOR VIII DEFICIENCY
     Route: 042
     Dates: start: 20010401
  16. PEGASYS [Concomitant]
     Indication: HEPATITIS C
     Route: 058
     Dates: start: 20030317, end: 20030604
  17. REBETOL [Concomitant]
     Indication: HEPATITIS C
     Dosage: 600MG PER DAY
     Route: 048
     Dates: start: 20030317, end: 20030604

REACTIONS (5)
  - ARTHRALGIA [None]
  - GAIT DISTURBANCE [None]
  - HYPERLACTACIDAEMIA [None]
  - JOINT DISLOCATION [None]
  - OSTEONECROSIS [None]
